FAERS Safety Report 20290174 (Version 1)
Quarter: 2022Q1

REPORT INFORMATION
  Report Type: Spontaneous
  Country: US (occurrence: None)
  Receive Date: 20220103
  Receipt Date: 20220103
  Transmission Date: 20220424
  Serious: No
  Sender: FDA-Public Use
  Company Number: None

PATIENT
  Age: 17 Year
  Sex: Female

DRUGS (1)
  1. STIVARGA [Suspect]
     Active Substance: REGORAFENIB
     Indication: Bone cancer
     Dosage: FREQUENCY : DAILY;?
     Route: 048
     Dates: start: 20211130

REACTIONS (6)
  - Urticaria [None]
  - Rash [None]
  - Pyrexia [None]
  - Generalised oedema [None]
  - Decreased appetite [None]
  - Lethargy [None]

NARRATIVE: CASE EVENT DATE: 20211210
